FAERS Safety Report 6908854-1 (Version None)
Quarter: 2010Q3

REPORT INFORMATION
  Report Type: 
  Country: None (occurrence: None)
  Receive Date: 20100805
  Receipt Date: 20100803
  Transmission Date: 20110219
  Serious: Yes (Hospitalization)
  Sender: FDA-Public Use
  Company Number: B0668250A

PATIENT
  Age: 80 Year
  Sex: Female
  Weight: 74 kg

DRUGS (10)
  1. ARIXTRA [Suspect]
     Indication: THROMBOPHLEBITIS
     Dosage: 7.5MG PER DAY
     Route: 058
     Dates: start: 20100702
  2. PREVISCAN [Suspect]
     Indication: THROMBOPHLEBITIS
     Dosage: 20MG PER DAY
     Route: 048
     Dates: start: 20100702
  3. PLAVIX [Concomitant]
     Route: 065
     Dates: end: 20100702
  4. INDAPAMIDE [Concomitant]
     Route: 065
  5. AMLOR [Concomitant]
     Route: 065
  6. BISOPROLOL FUMARATE [Concomitant]
     Route: 065
  7. NEXIUM [Concomitant]
     Route: 065
  8. CACIT D3 [Concomitant]
     Route: 065
  9. LYRICA [Concomitant]
     Dosage: 25MG TWICE PER DAY
     Route: 065
  10. SPECIAFOLDINE [Concomitant]
     Dosage: 1UNIT PER DAY
     Route: 065

REACTIONS (3)
  - ABDOMINAL WALL HAEMATOMA [None]
  - HAEMOGLOBIN DECREASED [None]
  - INCORRECT DRUG ADMINISTRATION DURATION [None]
